FAERS Safety Report 5975581-7 (Version None)
Quarter: 2008Q4

REPORT INFORMATION
  Report Type: 
  Country: None (occurrence: None)
  Receive Date: 20081128
  Receipt Date: 20081117
  Transmission Date: 20090506
  Serious: Yes (Life-Threatening, Hospitalization, Disabling)
  Sender: FDA-Public Use
  Company Number: OMPQ-NO-0810S-0942

PATIENT
  Age: 72 Year
  Sex: Female

DRUGS (6)
  1. OMNIPAQUE 140 [Suspect]
     Indication: INTRACRANIAL ANEURYSM
     Dosage: 200 ML, SINGLE DOSE, INTRAVASCULAR
     Dates: start: 20081016, end: 20081016
  2. SODIUM ACETATE, POTASSIUM CHLORIDE, SODIUM CHLORIDE, MAGNESIUM CHLORID [Concomitant]
  3. PENTAZOCINE (SOSEGON) [Concomitant]
  4. HEPARIN [Concomitant]
  5. NICARDIPINE HYDROCHLORIDE (PERDIPINE) [Concomitant]
  6. LIDOCAINE HYDROCHLORIDE (XYLOCAINE) [Concomitant]

REACTIONS (9)
  - ALTERED STATE OF CONSCIOUSNESS [None]
  - BRAIN OEDEMA [None]
  - CONTRAST MEDIA REACTION [None]
  - HAEMORRHAGE [None]
  - HEMIPLEGIA [None]
  - NECROSIS [None]
  - NERVOUS SYSTEM DISORDER [None]
  - QUADRIPARESIS [None]
  - VOMITING [None]
